FAERS Safety Report 8512541-6 (Version None)
Quarter: 2012Q2

REPORT INFORMATION
  Report Type: 
  Country: None (occurrence: None)
  Receive Date: 20120406
  Receipt Date: 20120104
  Transmission Date: 20120825
  Serious: Yes (Life-Threatening, Hospitalization)
  Sender: FDA-Public Use
  Company Number: US-CYPR-2012-000012

PATIENT
  Sex: Male
  Weight: 69.8539 kg

DRUGS (23)
  1. JANUVIA [Concomitant]
  2. ASPIRIN [Suspect]
     Indication: CORONARY ARTERY DISEASE
     Dosage: (325 MG ORAL)
     Route: 048
     Dates: start: 20080506, end: 20120107
  3. REGLAN [Concomitant]
  4. LANOXIN [Concomitant]
  5. LEVOTHYROXINE SODIUM [Concomitant]
  6. METOPROLOL SUCCINATE [Concomitant]
  7. IRON [Concomitant]
  8. NITROSTAT [Concomitant]
  9. LOVAZA [Concomitant]
  10. LIPITOR [Concomitant]
  11. CYPHER STENT [Concomitant]
  12. MERCAPTOPURINE [Concomitant]
  13. PENTASA [Concomitant]
  14. PROTONIX [Concomitant]
  15. LISINOPRIL [Concomitant]
  16. CLOPIDOGREL [Suspect]
     Indication: ANTIPLATELET THERAPY
     Dosage: (75 MG ORAL), (75 MG ORAL)
     Route: 048
     Dates: start: 20110223, end: 20111020
  17. CLOPIDOGREL [Suspect]
     Indication: ANTIPLATELET THERAPY
     Dosage: (75 MG ORAL), (75 MG ORAL)
     Route: 048
     Dates: start: 20111022, end: 20120102
  18. LASIX [Concomitant]
  19. ADVAIR DISKUS 100/50 [Concomitant]
  20. BETAPACE [Concomitant]
  21. MULTIVITAMIN [Concomitant]
  22. ISOSORBIDE MONONITRATE [Concomitant]
  23. PREDNISONE [Concomitant]

REACTIONS (2)
  - ACUTE RESPIRATORY FAILURE [None]
  - PNEUMONIA [None]
